FAERS Safety Report 6230507-6 (Version None)
Quarter: 2009Q2

REPORT INFORMATION
  Report Type: 
  Country: None (occurrence: None)
  Receive Date: 20090615
  Receipt Date: 20090520
  Transmission Date: 20091009
  Serious: No
  Sender: FDA-Public Use
  Company Number: US-ABBOTT-09P-163-0575403-00

PATIENT
  Sex: Male
  Weight: 86.26 kg

DRUGS (6)
  1. TRILIPIX [Suspect]
     Indication: BLOOD TRIGLYCERIDES INCREASED
     Route: 048
     Dates: start: 20090508, end: 20090515
  2. TRILIPIX [Suspect]
     Indication: BLOOD FIBRINOGEN INCREASED
  3. TRILIPIX [Suspect]
     Indication: APOLIPOPROTEIN B INCREASED
  4. ASPIRIN [Concomitant]
     Indication: CARDIOVASCULAR EVENT PROPHYLAXIS
     Route: 048
  5. MELATOMNIN [Concomitant]
     Indication: INSOMNIA
     Route: 048
  6. ALLOPURINOL [Concomitant]
     Indication: GOUT
     Route: 048

REACTIONS (2)
  - PRURITUS [None]
  - RASH GENERALISED [None]
